FAERS Safety Report 15288611 (Version 2)
Quarter: 2018Q3

REPORT INFORMATION
  Report Type: Spontaneous
  Country: GR (occurrence: GR)
  Receive Date: 20180817
  Receipt Date: 20180918
  Transmission Date: 20181010
  Serious: Yes (Other)
  Sender: FDA-Public Use
  Company Number: GR-GLAXOSMITHKLINE-GR2018GSK144705

PATIENT
  Age: 64 Year
  Sex: Male

DRUGS (1)
  1. DUODART [Suspect]
     Active Substance: DUTASTERIDE\TAMSULOSIN
     Indication: BENIGN PROSTATIC HYPERPLASIA
     Dosage: UNK
     Dates: start: 201604

REACTIONS (6)
  - Ventricular fibrillation [Unknown]
  - Arrhythmia [Unknown]
  - Dyspnoea [Recovered/Resolved]
  - Angina pectoris [Recovered/Resolved]
  - Hyperhidrosis [Recovered/Resolved]
  - Throat tightness [Recovered/Resolved]

NARRATIVE: CASE EVENT DATE: 2016
